FAERS Safety Report 6148414-6 (Version None)
Quarter: 2009Q2

REPORT INFORMATION
  Report Type: 
  Country: None (occurrence: None)
  Receive Date: 20090408
  Receipt Date: 20090402
  Transmission Date: 20091009
  Serious: Yes (Other)
  Sender: FDA-Public Use
  Company Number: US-WYE-H08813209

PATIENT
  Sex: Female
  Weight: 66.28 kg

DRUGS (9)
  1. TYGACIL [Suspect]
     Indication: CELLULITIS
     Dosage: 100 MG LOADING DOSE FOLLOWED BY 50 MG EVERY 12 HOURS
     Route: 042
     Dates: start: 20090401, end: 20090402
  2. NORVASC [Concomitant]
     Indication: DRUG USE FOR UNKNOWN INDICATION
     Dosage: UNKNOWN DOSE/ONCE DAILY
     Route: 048
  3. TOPROL-XL [Concomitant]
     Indication: DRUG USE FOR UNKNOWN INDICATION
     Dosage: UNKNOWN DOSE/ONCE DAILY
  4. VASCOR [Concomitant]
     Indication: DRUG USE FOR UNKNOWN INDICATION
     Dosage: DOSE UNKNOWN/ONCE DAILY
     Route: 048
  5. GABAPENTIN [Concomitant]
     Indication: DRUG USE FOR UNKNOWN INDICATION
     Dosage: UNKNOWN DOSE/ONCE DAILY
     Route: 048
  6. ISOSORBIDE [Concomitant]
     Indication: DRUG USE FOR UNKNOWN INDICATION
     Dosage: UNKNOWN DOSE/ONCE DAILY
     Route: 048
  7. LIDOCAINE [Concomitant]
     Indication: DRUG USE FOR UNKNOWN INDICATION
     Dosage: UNKNOWN
  8. PROTONIX [Concomitant]
     Indication: DRUG USE FOR UNKNOWN INDICATION
     Dosage: UNKNOWN DOSE/ONCE DAILY
     Route: 048
  9. ALTACE [Concomitant]
     Indication: DRUG USE FOR UNKNOWN INDICATION
     Dosage: UNKNOWN DOSE/ONCE DAILY

REACTIONS (1)
  - PULMONARY OEDEMA [None]
